FAERS Safety Report 8198116-X (Version None)
Quarter: 2012Q1

REPORT INFORMATION
  Report Type: 
  Country: None (occurrence: None)
  Receive Date: 20120309
  Receipt Date: 20120228
  Transmission Date: 20120608
  Serious: Yes (Other)
  Sender: FDA-Public Use
  Company Number: DE-JNJFOC-20120303656

PATIENT
  Sex: Female
  Weight: 68 kg

DRUGS (14)
  1. TAPENTADOL HYDROCHLORIDE [Suspect]
     Route: 048
     Dates: start: 20111005
  2. TRAMADOL HCL [Concomitant]
     Indication: ARTHRALGIA
     Route: 065
  3. TRIAM [Concomitant]
     Indication: PRODUCT USED FOR UNKNOWN INDICATION
     Route: 061
  4. GABAPENTIN [Concomitant]
     Indication: PRODUCT USED FOR UNKNOWN INDICATION
     Route: 065
  5. TAPENTADOL HYDROCHLORIDE [Suspect]
     Indication: ARTHRALGIA
     Route: 048
     Dates: end: 20111207
  6. TAPENTADOL HYDROCHLORIDE [Suspect]
     Indication: BACK PAIN
     Route: 048
     Dates: end: 20111207
  7. ANALGESICS [Concomitant]
     Indication: PRODUCT USED FOR UNKNOWN INDICATION
     Route: 065
  8. NSAID'S [Concomitant]
     Indication: BACK PAIN
  9. ACETAMINOPHEN W/ CODEINE [Concomitant]
     Indication: PRODUCT USED FOR UNKNOWN INDICATION
     Route: 065
  10. TRAMADOL HCL [Concomitant]
     Indication: BACK PAIN
     Route: 065
  11. PROCAINE HYDROCHLORIDE [Concomitant]
     Indication: PRODUCT USED FOR UNKNOWN INDICATION
     Route: 065
  12. TAPENTADOL HYDROCHLORIDE [Suspect]
     Route: 048
     Dates: start: 20111005
  13. NSAID'S [Concomitant]
     Indication: ARTHRALGIA
  14. LAXATIVES [Concomitant]
     Indication: PRODUCT USED FOR UNKNOWN INDICATION
     Route: 065

REACTIONS (5)
  - DRUG INEFFECTIVE [None]
  - CARDIOVASCULAR DISORDER [None]
  - FATIGUE [None]
  - DIZZINESS [None]
  - SOMNOLENCE [None]
